FAERS Safety Report 14976896 (Version 3)
Quarter: 2018Q3

REPORT INFORMATION
  Report Type: Spontaneous
  Country: AU (occurrence: AU)
  Receive Date: 20180605
  Receipt Date: 20180803
  Transmission Date: 20181010
  Serious: Yes (Other)
  Sender: FDA-Public Use
  Company Number: AU-009507513-1805AUS010434

PATIENT
  Age: 55 Year
  Sex: Female

DRUGS (6)
  1. VALPROATE SODIUM. [Suspect]
     Active Substance: VALPROATE SODIUM
     Indication: PRODUCT USED FOR UNKNOWN INDICATION
  2. MIRTAZAPINE. [Suspect]
     Active Substance: MIRTAZAPINE
     Indication: DEPRESSION
     Dosage: 30 MG, DAILY
     Route: 048
  3. TEMODAL [Suspect]
     Active Substance: TEMOZOLOMIDE
     Indication: MALIGNANT NERVOUS SYSTEM NEOPLASM
     Dosage: 320 MG, 4 TIMES
     Route: 048
     Dates: start: 20030618, end: 20030622
  4. TEMODAL [Suspect]
     Active Substance: TEMOZOLOMIDE
     Indication: PRODUCT USED FOR UNKNOWN INDICATION
  5. DEXAMETHASONE. [Suspect]
     Active Substance: DEXAMETHASONE
     Indication: PRODUCT USED FOR UNKNOWN INDICATION
     Dosage: 2 MG, DAILY
     Route: 048
     Dates: start: 20030603
  6. VALPROATE SODIUM. [Suspect]
     Active Substance: VALPROATE SODIUM
     Indication: SEIZURE
     Dosage: 800 MG, DAILY
     Route: 048

REACTIONS (3)
  - Bacterial infection [Unknown]
  - Oedema peripheral [Unknown]
  - Cellulitis [Unknown]

NARRATIVE: CASE EVENT DATE: 20030630
